FAERS Safety Report 18057840 (Version 1)
Quarter: 2020Q3

REPORT INFORMATION
  Report Type: Spontaneous
  Country: US (occurrence: US)
  Receive Date: 20200723
  Receipt Date: 20200723
  Transmission Date: 20201103
  Serious: No
  Sender: FDA-Public Use
  Company Number: US-AMGEN-USASP2020115366

PATIENT
  Sex: Male

DRUGS (2)
  1. VIT D [Concomitant]
     Active Substance: VITAMIN D NOS
  2. PROLIA [Suspect]
     Active Substance: DENOSUMAB
     Indication: CHEMOTHERAPY
     Dosage: UNK, UNK
     Route: 065
     Dates: start: 20200715

REACTIONS (1)
  - Off label use [Unknown]
